FAERS Safety Report 8181289 (Version 6)
Quarter: 2014Q1

REPORT INFORMATION
  Report Type: Spontaneous
  Country: GB (occurrence: None)
  Receive Date: 20110921
  Receipt Date: 20140214
  Transmission Date: 20141002
  Serious: Yes (Hospitalization)
  Sender: FDA-Public Use
  Company Number: HAPL-014-11-GB

PATIENT
  Age: 33 Year
  Sex: Female

DRUGS (2)
  1. NPLATE [Suspect]
     Indication: IMMUNE THROMBOCYTOPENIC PURPURA
     Dosage: 1 UG/KG (1X 1 / D)?
  2. DEXAMETHASONE [Concomitant]
     Indication: PRODUCT USED FOR UNKNOWN INDICATION

REACTIONS (14)
  - Rash maculo-papular [None]
  - Purpura [None]
  - Haemoglobin decreased [None]
  - Melaena [None]
  - Rectal haemorrhage [None]
  - Vaginal haemorrhage [None]
  - Rash erythematous [None]
  - Immune thrombocytopenic purpura [None]
  - Red blood cell count decreased [None]
  - Disease recurrence [None]
  - Haematocrit decreased [None]
  - Arthralgia [None]
  - Blood blister [None]
  - No therapeutic response [None]
